FAERS Safety Report 7959857-X (Version None)
Quarter: 2011Q4

REPORT INFORMATION
  Report Type: 
  Country: None (occurrence: None)
  Receive Date: 20111206
  Receipt Date: 20111128
  Transmission Date: 20120403
  Serious: Yes (Other)
  Sender: FDA-Public Use
  Company Number: US-JNJFOC-20111111867

PATIENT
  Age: 43 Year
  Sex: Female
  Weight: 78.02 kg

DRUGS (6)
  1. PREDNISONE TAB [Concomitant]
     Indication: RHEUMATOID ARTHRITIS
     Dates: start: 20111001
  2. SIMPONI [Suspect]
     Indication: RHEUMATOID ARTHRITIS
     Dosage: RECEIVED 2 INJECTIONS
     Route: 058
     Dates: start: 20111001, end: 20111001
  3. CELEBREX [Concomitant]
     Indication: RHEUMATOID ARTHRITIS
  4. VICODIN [Suspect]
     Indication: RHEUMATOID ARTHRITIS
     Dates: start: 20111001, end: 20111001
  5. TYLENOL W/ CODEINE [Suspect]
     Indication: RHEUMATOID ARTHRITIS
     Dates: start: 20111001, end: 20111001
  6. PLAQUENIL [Concomitant]
     Indication: RHEUMATOID ARTHRITIS

REACTIONS (4)
  - NAUSEA [None]
  - HEADACHE [None]
  - CONVULSION [None]
  - VOMITING [None]
